FAERS Safety Report 6723189-8 (Version None)
Quarter: 2010Q2

REPORT INFORMATION
  Report Type: 
  Country: None (occurrence: None)
  Receive Date: 20100513
  Receipt Date: 20100505
  Transmission Date: 20101027
  Serious: Yes (Other)
  Sender: FDA-Public Use
  Company Number: US-JNJFOC-20100306428

PATIENT
  Sex: Female

DRUGS (3)
  1. LEVAQUIN [Suspect]
     Indication: DRUG USE FOR UNKNOWN INDICATION
  2. ANTIHYPERTENSIVE [Concomitant]
     Route: 065
  3. CARDIAC MEDICATION [Concomitant]
     Route: 065

REACTIONS (11)
  - ARTHRALGIA [None]
  - DECREASED APPETITE [None]
  - INFLAMMATION [None]
  - MALAISE [None]
  - MYALGIA [None]
  - NIGHT SWEATS [None]
  - OEDEMA PERIPHERAL [None]
  - PERICARDITIS [None]
  - PYREXIA [None]
  - RASH ERYTHEMATOUS [None]
  - WEIGHT DECREASED [None]
